FAERS Safety Report 6879677-7 (Version None)
Quarter: 2010Q3

REPORT INFORMATION
  Report Type: 
  Country: None (occurrence: None)
  Receive Date: 20100728
  Receipt Date: 20100719
  Transmission Date: 20110219
  Serious: Yes (Death, Other)
  Sender: FDA-Public Use
  Company Number: US-NAPPMUNDI-USA-2010-0044633

PATIENT
  Age: 25 Year
  Sex: Female
  Weight: 87.075 kg

DRUGS (5)
  1. OXYCODONE HCL [Suspect]
     Indication: DRUG ABUSE
  2. METHADONE HCL [Suspect]
     Indication: DRUG ABUSE
  3. ALPRAZOLAM [Suspect]
     Indication: DRUG ABUSE
  4. NICOTINE [Suspect]
     Indication: PRODUCT USED FOR UNKNOWN INDICATION
  5. ALCOHOL [Concomitant]
     Indication: ALCOHOL USE

REACTIONS (4)
  - ACCIDENTAL DEATH [None]
  - DRUG TOXICITY [None]
  - MULTIPLE DRUG OVERDOSE ACCIDENTAL [None]
  - SUBSTANCE ABUSE [None]
